FAERS Safety Report 9022565 (Version 1)
Quarter: 2013Q1

REPORT INFORMATION
  Report Type: Spontaneous
  Country: US (occurrence: US)
  Receive Date: 20130118
  Receipt Date: 20130118
  Transmission Date: 20140127
  Serious: No
  Sender: FDA-Public Use
  Company Number: US-GLAXOSMITHKLINE-A0979116A

PATIENT
  Age: 72 Year
  Sex: Female

DRUGS (4)
  1. PROMACTA [Suspect]
     Indication: PRODUCT USED FOR UNKNOWN INDICATION
     Dosage: 50MG PER DAY
     Route: 048
     Dates: start: 20120508
  2. TYLENOL [Concomitant]
  3. PREDNISONE [Concomitant]
  4. NIASPAN [Concomitant]

REACTIONS (3)
  - Local swelling [Not Recovered/Not Resolved]
  - Sensation of heaviness [Unknown]
  - Drug ineffective [Unknown]
